FAERS Safety Report 9501745 (Version 3)
Quarter: 2013Q4

REPORT INFORMATION
  Report Type: Spontaneous
  Country: US (occurrence: None)
  Receive Date: 20130107
  Receipt Date: 20131226
  Transmission Date: 20140711
  Serious: Yes (Other)
  Sender: FDA-Public Use
  Company Number: PHEH2012US018834

PATIENT
  Age: 55 Year
  Sex: Female

DRUGS (2)
  1. GILENYA [Suspect]
     Indication: MULTIPLE SCLEROSIS
     Route: 048
     Dates: start: 20120924, end: 20120925
  2. MUSCLE RELAXANTS (NO INGREDIENTS/SUBSTANCES) [Concomitant]

REACTIONS (8)
  - Multiple sclerosis relapse [None]
  - Nausea [None]
  - Fatigue [None]
  - Dizziness [None]
  - Inappropriate schedule of drug administration [None]
  - Feeling jittery [None]
  - Pain in extremity [None]
  - Incorrect dose administered [None]
